FAERS Safety Report 6201128-6 (Version None)
Quarter: 2009Q2

REPORT INFORMATION
  Report Type: 
  Country: None (occurrence: None)
  Receive Date: 20090526
  Receipt Date: 20090515
  Transmission Date: 20091009
  Serious: Yes (Hospitalization, Other)
  Sender: FDA-Public Use
  Company Number: US-BAYER-200841062NA

PATIENT
  Age: 54 Year
  Sex: Female
  Weight: 48 kg

DRUGS (4)
  1. BETASERON [Suspect]
     Indication: SECONDARY PROGRESSIVE MULTIPLE SCLEROSIS
     Dosage: TOTAL DAILY DOSE: 4 MIU
     Route: 058
     Dates: start: 20081024, end: 20081128
  2. TESTOSTERONE [Concomitant]
     Dosage: TOTAL DAILY DOSE: 5 MG
  3. CLONAZEPAM [Concomitant]
     Dosage: TOTAL DAILY DOSE: 0.10 MG
  4. NAMENDA [Concomitant]
     Dosage: TOTAL DAILY DOSE: 5 MG

REACTIONS (5)
  - COGNITIVE DISORDER [None]
  - CONVULSION [None]
  - CONVULSIVE THRESHOLD LOWERED [None]
  - DEPRESSED LEVEL OF CONSCIOUSNESS [None]
  - EPILEPSY [None]
